FAERS Safety Report 25036396 (Version 2)
Quarter: 2025Q1

REPORT INFORMATION
  Report Type: Spontaneous
  Country: US (occurrence: US)
  Receive Date: 20250304
  Receipt Date: 20250328
  Transmission Date: 20250408
  Serious: Yes (Hospitalization, Other)
  Sender: RANBAXY
  Company Number: US-SUN PHARMACEUTICAL INDUSTRIES LTD-2025R1-496530

PATIENT
  Age: 50 Year
  Sex: Female
  Weight: 156.5 kg

DRUGS (3)
  1. DOXORUBICIN [Suspect]
     Active Substance: DOXORUBICIN
     Indication: Triple negative breast cancer
     Route: 042
     Dates: start: 20250117, end: 20250117
  2. AVELUMAB [Suspect]
     Active Substance: AVELUMAB
     Indication: Triple negative breast cancer
     Route: 042
     Dates: start: 20250117, end: 20250117
  3. BINIMETINIB [Concomitant]
     Active Substance: BINIMETINIB
     Indication: Triple negative breast cancer
     Dosage: 45 MILLIGRAM, QD
     Route: 048
     Dates: start: 20250101, end: 20250121

REACTIONS (2)
  - Metastases to central nervous system [Recovered/Resolved]
  - Confusional state [Not Recovered/Not Resolved]

NARRATIVE: CASE EVENT DATE: 20250130
